FAERS Safety Report 5356611-2 (Version None)
Quarter: 2007Q2

REPORT INFORMATION
  Report Type: 
  Country: None (occurrence: None)
  Receive Date: 20070614
  Receipt Date: 20070605
  Transmission Date: 20071010
  Serious: Yes (Disabling, Other)
  Sender: FDA-Public Use
  Company Number: PHFR2007GB01823

PATIENT
  Age: 54 Year
  Sex: Male

DRUGS (1)
  1. LAMISIL [Suspect]
     Dosage: 250MG
     Route: 065
     Dates: start: 19950101

REACTIONS (1)
  - MENIERE'S DISEASE [None]
